FAERS Safety Report 12979265 (Version 1)
Quarter: 2016Q4

REPORT INFORMATION
  Report Type: Report from Study
  Country: CA (occurrence: CA)
  Receive Date: 20161128
  Receipt Date: 20161128
  Transmission Date: 20170207
  Serious: Yes (Other)
  Sender: FDA-Public Use
  Company Number: CA-JNJFOC-20161122827

PATIENT
  Age: 41 Year
  Sex: Female
  Weight: 95.1 kg

DRUGS (2)
  1. REMICADE [Suspect]
     Active Substance: INFLIXIMAB
     Indication: CROHN^S DISEASE
     Route: 042
     Dates: start: 20161121
  2. REMICADE [Suspect]
     Active Substance: INFLIXIMAB
     Indication: CROHN^S DISEASE
     Route: 042

REACTIONS (9)
  - Dyspnoea [Unknown]
  - Dysphagia [Unknown]
  - Rash [Unknown]
  - Hypoaesthesia [Unknown]
  - Flushing [Recovering/Resolving]
  - Infusion related reaction [Unknown]
  - Chest pain [Recovering/Resolving]
  - Paraesthesia oral [Unknown]
  - Dry eye [Unknown]

NARRATIVE: CASE EVENT DATE: 20161121
